FAERS Safety Report 21774862 (Version 1)
Quarter: 2022Q4

REPORT INFORMATION
  Report Type: Spontaneous
  Country: US (occurrence: US)
  Receive Date: 20221224
  Receipt Date: 20221224
  Transmission Date: 20230113
  Serious: Yes (Other)
  Sender: FDA-Public Use
  Company Number: US-drreddys-SPO/USA/22/0158491

PATIENT
  Age: 15 Year
  Sex: Female

DRUGS (1)
  1. ZENATANE [Suspect]
     Active Substance: ISOTRETINOIN
     Indication: Product used for unknown indication
     Dosage: RMA ISSUE DATE 28 SEPTEMBER 2022 04:15:18 PM, RMA ISSUE DATE 03 NOVEMBER 2022 11:41:41 AM

REACTIONS (1)
  - Self-injurious ideation [Unknown]
